FAERS Safety Report 16872303 (Version 4)
Quarter: 2020Q4

REPORT INFORMATION
  Report Type: Spontaneous
  Country: US (occurrence: US)
  Receive Date: 20191001
  Receipt Date: 20201230
  Transmission Date: 20210113
  Serious: Yes (Other)
  Sender: FDA-Public Use
  Company Number: US-GILEAD-2019-0430940

PATIENT
  Age: 42 Year
  Sex: Male

DRUGS (17)
  1. DULOXETINE. [Concomitant]
     Active Substance: DULOXETINE
  2. NAPROXEN. [Concomitant]
     Active Substance: NAPROXEN
  3. BIKTARVY [Concomitant]
     Active Substance: BICTEGRAVIR SODIUM\EMTRICITABINE\TENOFOVIR ALAFENAMIDE FUMARATE
  4. TRIUMEQ [Concomitant]
     Active Substance: ABACAVIR SULFATE\DOLUTEGRAVIR SODIUM\LAMIVUDINE
  5. BUSPIRONE [Concomitant]
     Active Substance: BUSPIRONE HYDROCHLORIDE
  6. NYSTATIN. [Concomitant]
     Active Substance: NYSTATIN
  7. METOPROLOL. [Concomitant]
     Active Substance: METOPROLOL
  8. PROMETHAZINE [Concomitant]
     Active Substance: PROMETHAZINE HYDROCHLORIDE
  9. LEVOFLOXACIN. [Concomitant]
     Active Substance: LEVOFLOXACIN
  10. QUETIAPINE. [Concomitant]
     Active Substance: QUETIAPINE
  11. RISPERIDONE. [Concomitant]
     Active Substance: RISPERIDONE
  12. TRUVADA [Suspect]
     Active Substance: EMTRICITABINE\TENOFOVIR DISOPROXIL FUMARATE
     Indication: HIV INFECTION
     Dosage: UNK
     Route: 048
     Dates: start: 201304, end: 201710
  13. VIREAD [Suspect]
     Active Substance: TENOFOVIR DISOPROXIL FUMARATE
     Indication: HIV INFECTION
     Dosage: UNK
     Route: 048
     Dates: start: 201007, end: 201303
  14. PANTOPRAZOLE [Concomitant]
     Active Substance: PANTOPRAZOLE
  15. TRAMADOL. [Concomitant]
     Active Substance: TRAMADOL
  16. GABAPENTIN. [Concomitant]
     Active Substance: GABAPENTIN
  17. MIRTAZAPINE. [Concomitant]
     Active Substance: MIRTAZAPINE

REACTIONS (12)
  - Blood creatinine increased [Not Recovered/Not Resolved]
  - Pain [Unknown]
  - Renal failure [Not Recovered/Not Resolved]
  - Emotional distress [Unknown]
  - Multiple fractures [Recovered/Resolved]
  - Bone density abnormal [Unknown]
  - Anhedonia [Unknown]
  - Tooth loss [Unknown]
  - Rib fracture [Recovered/Resolved]
  - Economic problem [Unknown]
  - Anxiety [Unknown]
  - Bone density decreased [Unknown]

NARRATIVE: CASE EVENT DATE: 20110301
